FAERS Safety Report 8132366-3 (Version None)
Quarter: 2012Q1

REPORT INFORMATION
  Report Type: 
  Country: None (occurrence: None)
  Receive Date: 20120213
  Receipt Date: 20120201
  Transmission Date: 20120608
  Serious: Yes (Hospitalization)
  Sender: FDA-Public Use
  Company Number: JP-ELI_LILLY_AND_COMPANY-JP201202000449

PATIENT
  Age: 65 Year
  Sex: Male

DRUGS (3)
  1. STEROID ANTIBACTERIALS [Concomitant]
     Indication: ANALGESIC ASTHMA SYNDROME
     Dosage: UNK
     Route: 055
  2. HALCION [Concomitant]
     Dosage: UNK
     Route: 048
  3. FORTEO [Suspect]
     Indication: OSTEOPOROSIS
     Dosage: 20 UG, UNK
     Route: 058
     Dates: start: 20120128, end: 20120128

REACTIONS (3)
  - BRADYCARDIA [None]
  - ALTERED STATE OF CONSCIOUSNESS [None]
  - NAUSEA [None]
